FAERS Safety Report 20514661 (Version 2)
Quarter: 2022Q1

REPORT INFORMATION
  Report Type: Spontaneous
  Country: US (occurrence: US)
  Receive Date: 20220224
  Receipt Date: 20220325
  Transmission Date: 20220423
  Serious: No
  Sender: FDA-Public Use
  Company Number: US-BAUSCH-BL-2022-005344

PATIENT
  Age: 82 Year
  Sex: Male
  Weight: 69.462 kg

DRUGS (2)
  1. XIFAXAN [Suspect]
     Active Substance: RIFAXIMIN
     Indication: Irritable bowel syndrome
     Route: 048
     Dates: start: 20220216
  2. METAMUCIL [Concomitant]
     Active Substance: PLANTAGO SEED
     Indication: Faeces soft

REACTIONS (2)
  - Abdominal pain upper [Not Recovered/Not Resolved]
  - Inability to afford medication [Unknown]
